FAERS Safety Report 9281594 (Version 1)
Quarter: 2013Q2

REPORT INFORMATION
  Report Type: Spontaneous
  Country: US (occurrence: US)
  Receive Date: 20130509
  Receipt Date: 20130509
  Transmission Date: 20140414
  Serious: Yes (Other)
  Sender: FDA-Public Use
  Company Number: US-ELI_LILLY_AND_COMPANY-US201305000441

PATIENT
  Sex: Female

DRUGS (7)
  1. EVISTA [Suspect]
     Indication: OSTEOPOROSIS
     Dosage: UNK
     Dates: start: 20130327, end: 20130327
  2. VALACICLOVIR HYDROCHLORIDE [Concomitant]
     Dosage: 500 MG, QD
  3. GLUCOSAMINE [Concomitant]
  4. VITAMIN E [Concomitant]
  5. VITAMIN D [Concomitant]
  6. CO Q-10 [Concomitant]
  7. FISH OIL [Concomitant]

REACTIONS (5)
  - Pharyngeal disorder [Recovering/Resolving]
  - Tongue disorder [Recovering/Resolving]
  - Gait disturbance [Unknown]
  - Oropharyngeal pain [Recovering/Resolving]
  - Feeling abnormal [Unknown]
